FAERS Safety Report 5804902-0 (Version None)
Quarter: 2008Q3

REPORT INFORMATION
  Report Type: 
  Country: None (occurrence: None)
  Receive Date: 20080709
  Receipt Date: 20080627
  Transmission Date: 20090109
  Serious: Yes (Other)
  Sender: FDA-Public Use
  Company Number: PHHY2008FR12538

PATIENT
  Age: 72 Year
  Sex: Female

DRUGS (1)
  1. ZOLEDRONIC ACID [Suspect]

REACTIONS (3)
  - ABDOMINAL DISCOMFORT [None]
  - LABORATORY TEST ABNORMAL [None]
  - PANCREATITIS [None]
